FAERS Safety Report 9209138 (Version 3)
Quarter: 2013Q3

REPORT INFORMATION
  Report Type: Report from Study
  Country: US (occurrence: US)
  Receive Date: 20130404
  Receipt Date: 20130920
  Transmission Date: 20140515
  Serious: No
  Sender: FDA-Public Use
  Company Number: PHEH2013US007670

PATIENT
  Sex: Male
  Weight: 88.5 kg

DRUGS (6)
  1. NILOTINIB [Suspect]
     Indication: CHRONIC MYELOID LEUKAEMIA
     Dosage: 300 MG, Q12H
     Route: 048
  2. SIMVASTATIN [Concomitant]
     Dosage: 20 MG ONCE AT BEDTIME
  3. ASPIRIN LOW [Concomitant]
     Dosage: 81 MG
     Route: 048
  4. VITAMIN D3 [Concomitant]
     Dosage: 3000 U, QD
  5. FLUTICASONE [Concomitant]
     Route: 045
  6. VENTOLIN HFA [Concomitant]
     Dosage: 2 PUFFS, Q6H
     Route: 048

REACTIONS (9)
  - Muscle spasms [Unknown]
  - Influenza [Unknown]
  - Chills [Unknown]
  - Fatigue [Unknown]
  - Dyspepsia [Unknown]
  - Weight decreased [Unknown]
  - Joint swelling [Unknown]
  - Weight fluctuation [Unknown]
  - Blood calcium decreased [Unknown]
